FAERS Safety Report 10154190 (Version 2)
Quarter: 2014Q2

REPORT INFORMATION
  Report Type: Spontaneous
  Country: US (occurrence: US)
  Receive Date: 20140506
  Receipt Date: 20140515
  Transmission Date: 20141212
  Serious: No
  Sender: FDA-Public Use
  Company Number: US-PFIZER INC-2014120166

PATIENT
  Age: 91 Year
  Sex: Male
  Weight: 68.03 kg

DRUGS (3)
  1. LYRICA [Suspect]
     Indication: PAIN IN EXTREMITY
     Dosage: 200MG IN A DAY BY TAKING 100MG AT NIGHT AND 50MG AT 3AM AND 50MG AT 8AM
     Route: 048
     Dates: start: 2012
  2. LYRICA [Suspect]
     Indication: ARTHRALGIA
     Dosage: 150MG AT NIGHT AND EITHER 50MG OR 100MG AT 8AM
  3. METFORMIN [Concomitant]
     Indication: DIABETES MELLITUS
     Dosage: 500 MG, DAILY

REACTIONS (2)
  - Drug effect incomplete [Unknown]
  - Terminal insomnia [Unknown]
